FAERS Safety Report 13679504 (Version 1)
Quarter: 2017Q2

REPORT INFORMATION
  Report Type: Spontaneous
  Country: CZ (occurrence: CZ)
  Receive Date: 20170622
  Receipt Date: 20170622
  Transmission Date: 20170830
  Serious: Yes (Life-Threatening, Hospitalization)
  Sender: FDA-Public Use
  Company Number: CZ-SA-2017SA110208

PATIENT
  Age: 17 Year
  Sex: Female

DRUGS (3)
  1. ZENARO [Suspect]
     Active Substance: LEVOCETIRIZINE
     Indication: SUICIDE ATTEMPT
     Route: 048
  2. ZYRTEC [Suspect]
     Active Substance: CETIRIZINE HYDROCHLORIDE
     Indication: SUICIDE ATTEMPT
     Route: 048
  3. STOPEX [Suspect]
     Active Substance: DEXTROMETHORPHAN HYDROBROMIDE
     Indication: SUICIDE ATTEMPT
     Route: 065

REACTIONS (2)
  - Intentional product misuse [Unknown]
  - Suicide attempt [Unknown]
